FAERS Safety Report 9677436 (Version 1)
Quarter: 2013Q4

REPORT INFORMATION
  Report Type: Spontaneous
  Country: US (occurrence: US)
  Receive Date: 20131108
  Receipt Date: 20131108
  Transmission Date: 20140711
  Serious: No
  Sender: FDA-Public Use
  Company Number: US-ENDO PHARMACEUTICALS INC.-GLIM20120003

PATIENT
  Age: 64 Year
  Sex: Female
  Weight: 99.88 kg

DRUGS (1)
  1. GLIMEPIRIDE TABLETS 4MG [Suspect]
     Indication: PRODUCT USED FOR UNKNOWN INDICATION
     Route: 048
     Dates: start: 2010

REACTIONS (1)
  - Alopecia [Not Recovered/Not Resolved]
